FAERS Safety Report 5797824-5 (Version None)
Quarter: 2008Q3

REPORT INFORMATION
  Report Type: 
  Country: None (occurrence: None)
  Receive Date: 20080702
  Receipt Date: 20080627
  Transmission Date: 20090109
  Serious: Yes (Hospitalization)
  Sender: FDA-Public Use
  Company Number: FR-WYE-G01775308

PATIENT
  Sex: Female
  Weight: 8.38 kg

DRUGS (2)
  1. ADVIL [Suspect]
     Indication: PYREXIA
     Dosage: ONE SINGLE DOSE
     Route: 048
     Dates: start: 20080126, end: 20080126
  2. ACETAMINOPHEN [Concomitant]
     Indication: PYREXIA
     Dosage: UNKNOWN
     Route: 048
     Dates: start: 20080126

REACTIONS (2)
  - MOBILITY DECREASED [None]
  - OSTEOMYELITIS ACUTE [None]
